FAERS Safety Report 8194421-1 (Version None)
Quarter: 2012Q1

REPORT INFORMATION
  Report Type: 
  Country: None (occurrence: None)
  Receive Date: 20120308
  Receipt Date: 20120305
  Transmission Date: 20120608
  Serious: Yes (Other)
  Sender: FDA-Public Use
  Company Number: US-PFIZER INC-2012059051

PATIENT
  Sex: Female
  Weight: 54 kg

DRUGS (11)
  1. OXYCODONE HCL [Suspect]
     Dosage: UNK
  2. LIPITOR [Suspect]
     Indication: BLOOD CHOLESTEROL INCREASED
     Dosage: 5 MG, 1X/DAY
     Route: 048
     Dates: end: 20120101
  3. VITAMIN E [Concomitant]
     Dosage: 400 IU, UNK
  4. ACETYLSALICYLIC ACID [Concomitant]
     Dosage: UNK
  5. ATORVASTATIN CALCIUM [Suspect]
     Indication: BLOOD CHOLESTEROL INCREASED
     Dosage: 5 MG, 1X/DAY
     Route: 048
     Dates: start: 20120101
  6. DIOVAN [Concomitant]
     Dosage: 80 MG, UNK
  7. PIROXICAM [Suspect]
     Dosage: UNK
  8. LISINOPRIL [Suspect]
     Dosage: UNK
  9. GARLIC [Concomitant]
     Dosage: UNK
  10. ERYTHROMYCIN [Suspect]
     Dosage: UNK
  11. CALCIUM [Concomitant]
     Dosage: 1200 MG, UNK

REACTIONS (9)
  - RASH [None]
  - CARDIAC DISORDER [None]
  - ASTHENIA [None]
  - DIZZINESS [None]
  - IMPATIENCE [None]
  - VOMITING [None]
  - MALAISE [None]
  - HYPERSENSITIVITY [None]
  - HEADACHE [None]
